FAERS Safety Report 6003669-3 (Version None)
Quarter: 2008Q4

REPORT INFORMATION
  Report Type: 
  Country: None (occurrence: None)
  Receive Date: 20081216
  Receipt Date: 20080717
  Transmission Date: 20090506
  Serious: Yes (Other)
  Sender: FDA-Public Use
  Company Number: US-AMGEN-QUU295299

PATIENT
  Age: 36 Year
  Sex: Male

DRUGS (3)
  1. ARANESP [Suspect]
     Indication: RENAL FAILURE CHRONIC
     Dates: start: 20080628
  2. BACTRIM [Concomitant]
     Dates: start: 20080601
  3. UNSPECIFIED MEDICATION [Concomitant]
     Dates: start: 20080601

REACTIONS (1)
  - EXFOLIATIVE RASH [None]
